FAERS Safety Report 16395573 (Version 1)
Quarter: 2019Q3

REPORT INFORMATION
  Report Type: Spontaneous
  Country: US (occurrence: US)
  Receive Date: 20190604
  Receipt Date: 20190604
  Transmission Date: 20191004
  Serious: Yes (Disabling)
  Sender: FDA-Public Use
  Company Number: None

PATIENT
  Age: 27 Year
  Sex: Female
  Weight: 49.9 kg

DRUGS (1)
  1. MIRENA [Suspect]
     Active Substance: LEVONORGESTREL
     Dates: start: 20170613, end: 20170808

REACTIONS (2)
  - Cognitive disorder [None]
  - Pain [None]

NARRATIVE: CASE EVENT DATE: 20170725
